FAERS Safety Report 20834789 (Version 2)
Quarter: 2022Q3

REPORT INFORMATION
  Report Type: Report from Study
  Country: US (occurrence: US)
  Receive Date: 20220516
  Receipt Date: 20220623
  Transmission Date: 20221027
  Serious: No
  Sender: FDA-Public Use
  Company Number: US-NOVARTISTESTPH-NVSC2022US112331

PATIENT
  Sex: Male

DRUGS (3)
  1. TABRECTA [Suspect]
     Active Substance: CAPMATINIB
     Indication: Burning sensation
     Dosage: UNK
     Route: 065
     Dates: start: 2022
  2. TABRECTA [Suspect]
     Active Substance: CAPMATINIB
     Indication: Chest pain
     Dosage: UNK
     Route: 048
     Dates: start: 20220422
  3. TABRECTA [Suspect]
     Active Substance: CAPMATINIB
     Indication: Joint swelling

REACTIONS (4)
  - Chest pain [Not Recovered/Not Resolved]
  - Joint swelling [Not Recovered/Not Resolved]
  - Burning sensation [Unknown]
  - Product use in unapproved indication [Unknown]
